FAERS Safety Report 7277481-1 (Version None)
Quarter: 2011Q1

REPORT INFORMATION
  Report Type: 
  Country: None (occurrence: None)
  Receive Date: 20110207
  Receipt Date: 20110124
  Transmission Date: 20110831
  Serious: Yes (Hospitalization)
  Sender: FDA-Public Use
  Company Number: US-ELI_LILLY_AND_COMPANY-US201012002180

PATIENT
  Sex: Female
  Weight: 62.1 kg

DRUGS (12)
  1. NORVASC [Concomitant]
  2. CALTRATE [Concomitant]
  3. ENBREL [Concomitant]
  4. MULTI-VITAMIN [Concomitant]
  5. TOPRAL [Concomitant]
  6. AZATHIOPRINE [Concomitant]
     Indication: RHEUMATOID ARTHRITIS
  7. SYNTHROID [Concomitant]
  8. VITAMIN D [Concomitant]
  9. ACETYLSALICYLIC ACID [Concomitant]
  10. HYDROCODONE BITARTRATE [Concomitant]
  11. FORTEO [Suspect]
     Indication: OSTEOPOROSIS
     Dosage: 20 UG, DAILY (1/D)
     Route: 058
     Dates: start: 20100901
  12. PROTON PUMP INHIBITORS [Concomitant]

REACTIONS (9)
  - WEIGHT DECREASED [None]
  - TENSION [None]
  - MYOCARDIAL INFARCTION [None]
  - FATIGUE [None]
  - BLOOD PRESSURE INCREASED [None]
  - HEART RATE INCREASED [None]
  - VASCULAR OCCLUSION [None]
  - DECREASED APPETITE [None]
  - DEPRESSION [None]
